FAERS Safety Report 4314663-2 (Version None)
Quarter: 2004Q1

REPORT INFORMATION
  Report Type: 
  Country: None (occurrence: None)
  Receive Date: 20040308
  Receipt Date: 20040219
  Transmission Date: 20041129
  Serious: Yes (Life-Threatening, Hospitalization)
  Sender: FDA-Public Use
  Company Number: 2002002139

PATIENT
  Age: 49 Year
  Sex: Male
  Weight: 66 kg

DRUGS (3)
  1. ZELDOX (ZIPRASIDONE) [Suspect]
     Indication: DEMENTIA
     Dosage: 160 MG (BID), ORAL
     Route: 048
     Dates: start: 20020605, end: 20020629
  2. ATORVASTATIN CALCIUM [Concomitant]
  3. OXAZEPAM [Concomitant]

REACTIONS (21)
  - ASTHENIA [None]
  - BLOOD PRESSURE INCREASED [None]
  - BRAIN DAMAGE [None]
  - CARDIAC ARREST [None]
  - DELUSIONAL DISORDER, PERSECUTORY TYPE [None]
  - DROOLING [None]
  - DYSKINESIA [None]
  - FAECAL INCONTINENCE [None]
  - FEELING ABNORMAL [None]
  - FEELING HOT AND COLD [None]
  - HEAD INJURY [None]
  - LOSS OF CONSCIOUSNESS [None]
  - MUSCLE TWITCHING [None]
  - PARAESTHESIA [None]
  - PULSE ABSENT [None]
  - RESPIRATORY ARREST [None]
  - RESPIRATORY FAILURE [None]
  - SALIVARY HYPERSECRETION [None]
  - TREATMENT NONCOMPLIANCE [None]
  - URINARY INCONTINENCE [None]
  - VOMITING [None]
